FAERS Safety Report 11897650 (Version 2)
Quarter: 2016Q1

REPORT INFORMATION
  Report Type: Spontaneous
  Country: IT (occurrence: IT)
  Receive Date: 20160108
  Receipt Date: 20160115
  Transmission Date: 20160526
  Serious: Yes (Other)
  Sender: FDA-Public Use
  Company Number: IT-009507513-1512ITA014275

PATIENT
  Age: 45 Year
  Sex: Female

DRUGS (4)
  1. TEMOZOLOMIDE. [Suspect]
     Active Substance: TEMOZOLOMIDE
     Indication: EPENDYMOMA MALIGNANT
     Dosage: 200 MG/M2, ON DAYS 1-5 EVERY
  2. CISPLATIN. [Suspect]
     Active Substance: CISPLATIN
     Indication: EPENDYMOMA MALIGNANT
     Dosage: 25 MG/M2, UNK
     Route: 042
     Dates: start: 201201
  3. TEMOZOLOMIDE. [Suspect]
     Active Substance: TEMOZOLOMIDE
     Dosage: 150 MG/M2, QD; 5 CONSECUTIVE
     Route: 048
     Dates: start: 201205
  4. CISPLATIN. [Suspect]
     Active Substance: CISPLATIN
     Dosage: 75 MG/M2, 60MIN INFUSION ON DAY1
     Route: 042
     Dates: start: 201205

REACTIONS (6)
  - Anaemia [Unknown]
  - Nausea [Unknown]
  - Alopecia [Unknown]
  - Thrombocytopenia [Unknown]
  - Nephropathy toxic [Unknown]
  - Fatigue [Unknown]
